FAERS Safety Report 24222135 (Version 1)
Quarter: 2024Q3

REPORT INFORMATION
  Report Type: Spontaneous
  Country: AU (occurrence: AU)
  Receive Date: 20240819
  Receipt Date: 20240819
  Transmission Date: 20241017
  Serious: Yes (Hospitalization, Other)
  Sender: CIPLA
  Company Number: AU-CIPLA LTD.-2024AU08717

PATIENT

DRUGS (5)
  1. LENALIDOMIDE [Suspect]
     Active Substance: LENALIDOMIDE
     Indication: Plasma cell myeloma
     Dosage: 15 MILLIGRAM, MONTHLY
     Route: 048
     Dates: start: 20230828, end: 20240129
  2. LORATADINE [Suspect]
     Active Substance: LORATADINE
     Indication: Prophylaxis
     Dosage: 10 MILLIGRAM, MONTHLY
     Route: 048
     Dates: start: 20230828
  3. DARATUMUMAB [Suspect]
     Active Substance: DARATUMUMAB
     Indication: Plasma cell myeloma
     Dosage: 1800 MILLIGRAM, MONTHLY
     Route: 058
     Dates: start: 20230828, end: 20240603
  4. DEXAMETHASONE [Suspect]
     Active Substance: DEXAMETHASONE
     Indication: Prophylaxis
     Dosage: 20 MILLIGRAM, MONTHLY
     Route: 048
     Dates: start: 20230828
  5. ELRANATAMAB [Suspect]
     Active Substance: ELRANATAMAB
     Indication: Plasma cell myeloma
     Dosage: 76 MILLIGRAM, 1 CYCLICAL (FORTNIGHTLY)
     Route: 058
     Dates: start: 20230814, end: 20240603

REACTIONS (1)
  - Bronchoscopy [Not Recovered/Not Resolved]

NARRATIVE: CASE EVENT DATE: 20240603
